APPROVED DRUG PRODUCT: NICARDIPINE HYDROCHLORIDE IN 0.9% SODIUM CHLORIDE
Active Ingredient: NICARDIPINE HYDROCHLORIDE
Strength: 20MG/200ML (0.1MG/ML)
Dosage Form/Route: INJECTABLE;INTRAVENOUS
Application: N022276 | Product #002 | TE Code: AP
Applicant: HIKMA INTERNATIONAL PHARMACEUTICALS LLC
Approved: Apr 7, 2016 | RLD: Yes | RS: Yes | Type: RX